FAERS Safety Report 6308401-1 (Version None)
Quarter: 2009Q3

REPORT INFORMATION
  Report Type: 
  Country: None (occurrence: None)
  Receive Date: 20090813
  Receipt Date: 20090805
  Transmission Date: 20100115
  Serious: Yes (Hospitalization, Disabling, Other)
  Sender: FDA-Public Use
  Company Number: US-AVENTIS-200915462US

PATIENT
  Sex: Female
  Weight: 109 kg

DRUGS (6)
  1. LANTUS [Suspect]
     Indication: DIABETES MELLITUS
     Route: 058
     Dates: start: 20040101
  2. OPTICLIK (INSULIN INJECTION PEN) [Suspect]
     Indication: DIABETES MELLITUS
     Dates: start: 20040101
  3. METFORMIN HCL [Concomitant]
     Route: 048
     Dates: start: 20040101
  4. SULFONAMIDES, UREA DERIVATIVES [Concomitant]
     Route: 048
     Dates: start: 19820101
  5. LISINOPRIL [Concomitant]
     Route: 048
     Dates: start: 19880101
  6. CYMBALTA [Concomitant]
     Route: 048
     Dates: start: 20040101

REACTIONS (2)
  - ANKLE FRACTURE [None]
  - NEUROPATHIC ARTHROPATHY [None]
